FAERS Safety Report 4747897-3 (Version None)
Quarter: 2005Q3

REPORT INFORMATION
  Report Type: 
  Country: None (occurrence: None)
  Receive Date: 20050816
  Receipt Date: 20050809
  Transmission Date: 20060218
  Serious: Yes (Hospitalization)
  Sender: FDA-Public Use
  Company Number: ZONI002176

PATIENT
  Age: 80 Year
  Sex: Female

DRUGS (2)
  1. ZONISAMIDE [Suspect]
     Dosage: 200 MG, ORAL
     Route: 048
     Dates: start: 20050510
  2. ZOVIRAX [Concomitant]

REACTIONS (2)
  - HERPES SIMPLEX [None]
  - RASH [None]
